FAERS Safety Report 8977050 (Version 1)
Quarter: 2012Q4

REPORT INFORMATION
  Report Type: 
  Country: BR (occurrence: BR)
  Receive Date: 20121220
  Receipt Date: 20121220
  Transmission Date: 20130627
  Serious: Yes (Other)
  Sender: FDA-Public Use
  Company Number: BR-JNJFOC-20121208322

PATIENT
  Age: 27 Year
  Sex: Female

DRUGS (3)
  1. IMOSEC [Suspect]
     Indication: DIARRHOEA
     Route: 048
     Dates: start: 200601, end: 200806
  2. IMOSEC [Suspect]
     Indication: DIARRHOEA
     Route: 048
     Dates: start: 200806
  3. IMOSEC [Suspect]
     Indication: DIARRHOEA
     Route: 048
     Dates: start: 200806, end: 200806

REACTIONS (3)
  - Gastrointestinal infection [Recovered/Resolved]
  - Prescribed overdose [Recovered/Resolved]
  - Tooth loss [Not Recovered/Not Resolved]
